FAERS Safety Report 9530987 (Version 2)
Quarter: 2013Q3

REPORT INFORMATION
  Report Type: Spontaneous
  Country: DE (occurrence: DE)
  Receive Date: 20130918
  Receipt Date: 20130918
  Transmission Date: 20140515
  Serious: Yes (Other)
  Sender: FDA-Public Use
  Company Number: DE-AMGEN-DEUSP2013054995

PATIENT
  Age: 82 Year
  Sex: Male
  Weight: 60 kg

DRUGS (7)
  1. VECTIBIX [Suspect]
     Indication: PRODUCT USED FOR UNKNOWN INDICATION
     Dosage: 358 MG, 6X
     Route: 042
     Dates: start: 201306, end: 20130904
  2. DEXAMETHASON                       /00016001/ [Concomitant]
     Indication: PROPHYLAXIS OF NAUSEA AND VOMITING
     Dosage: 8 MG, UNK
     Route: 042
     Dates: start: 201306, end: 201309
  3. DEXAMETHASON                       /00016001/ [Concomitant]
     Indication: ANTIALLERGIC THERAPY
  4. RANITIDIN [Concomitant]
     Indication: PROPHYLAXIS OF NAUSEA AND VOMITING
     Dosage: 50 MG, 6X
     Route: 042
     Dates: start: 201306, end: 201309
  5. RANITIDIN [Concomitant]
     Indication: ANTIALLERGIC THERAPY
  6. DIMETINDENE [Concomitant]
     Indication: PROPHYLAXIS OF NAUSEA AND VOMITING
     Dosage: 4 MG, 6X
     Route: 042
     Dates: start: 201306, end: 201309
  7. DIMETINDENE [Concomitant]
     Indication: ANTIALLERGIC THERAPY

REACTIONS (4)
  - Skin reaction [Recovering/Resolving]
  - Pain [Unknown]
  - Erythema [Recovering/Resolving]
  - Skin exfoliation [Recovering/Resolving]
